FAERS Safety Report 12448404 (Version 2)
Quarter: 2016Q2

REPORT INFORMATION
  Report Type: Report from Study
  Country: US (occurrence: US)
  Receive Date: 20160608
  Receipt Date: 20160630
  Transmission Date: 20160815
  Serious: Yes (Hospitalization)
  Sender: FDA-Public Use
  Company Number: US-BIOGEN-2013BI027662

PATIENT
  Age: 70 Year
  Sex: Male

DRUGS (5)
  1. STELARA [Concomitant]
     Active Substance: USTEKINUMAB
     Indication: PRODUCT USED FOR UNKNOWN INDICATION
     Route: 065
  2. TYSABRI [Suspect]
     Active Substance: NATALIZUMAB
     Route: 042
     Dates: end: 201602
  3. TYSABRI [Suspect]
     Active Substance: NATALIZUMAB
     Indication: CROHN^S DISEASE
     Route: 042
     Dates: start: 201301
  4. METHOTREXATE [Concomitant]
     Active Substance: METHOTREXATE
     Indication: PRODUCT USED FOR UNKNOWN INDICATION
     Route: 065
  5. TYSABRI [Suspect]
     Active Substance: NATALIZUMAB
     Route: 042
     Dates: start: 20130122, end: 20160202

REACTIONS (8)
  - Enteritis [Recovered/Resolved]
  - Hypophagia [Not Recovered/Not Resolved]
  - Sepsis [Recovered/Resolved]
  - Crohn^s disease [Recovered/Resolved]
  - Drug effect decreased [Recovered/Resolved]
  - Cardiac failure congestive [Recovered/Resolved]
  - Central venous catheterisation [Unknown]
  - Small intestinal resection [Recovered/Resolved]

NARRATIVE: CASE EVENT DATE: 201303
